FAERS Safety Report 5991888-1 (Version None)
Quarter: 2008Q4

REPORT INFORMATION
  Report Type: 
  Country: None (occurrence: None)
  Receive Date: 20081211
  Receipt Date: 20080508
  Transmission Date: 20090506
  Serious: No
  Sender: FDA-Public Use
  Company Number: US-AMGEN-KDL275482

PATIENT
  Sex: Male

DRUGS (2)
  1. ENBREL [Suspect]
     Indication: ANKYLOSING SPONDYLITIS
     Route: 058
     Dates: start: 20020501
  2. METHOTREXATE [Concomitant]
     Dates: start: 20020101

REACTIONS (5)
  - COUGH [None]
  - INFLUENZA [None]
  - OEDEMA [None]
  - PAIN [None]
  - PYREXIA [None]
